FAERS Safety Report 8053601-6 (Version None)
Quarter: 2012Q1

REPORT INFORMATION
  Report Type: 
  Country: None (occurrence: None)
  Receive Date: 20120118
  Receipt Date: 20120109
  Transmission Date: 20120608
  Serious: Yes (Disabling)
  Sender: FDA-Public Use
  Company Number: US-MERCK-1104USA02993

PATIENT
  Age: 23 Year
  Sex: Male
  Weight: 93 kg

DRUGS (2)
  1. PROPECIA [Suspect]
     Indication: ALOPECIA
     Route: 048
     Dates: start: 20090129
  2. PROPECIA [Suspect]
     Route: 048
     Dates: start: 20090129

REACTIONS (13)
  - LIBIDO DECREASED [None]
  - AMNESIA [None]
  - SEXUAL DYSFUNCTION [None]
  - ERECTILE DYSFUNCTION [None]
  - BLOOD TESTOSTERONE DECREASED [None]
  - ASTHENIA [None]
  - FATIGUE [None]
  - ANXIETY [None]
  - EMOTIONAL DISTRESS [None]
  - EPIDIDYMITIS [None]
  - HYPOGONADISM [None]
  - DEPRESSION [None]
  - ORCHITIS [None]
